FAERS Safety Report 8764037 (Version 2)
Quarter: 2012Q4

REPORT INFORMATION
  Report Type: Spontaneous
  Country: US (occurrence: None)
  Receive Date: 20120828
  Receipt Date: 20120920
  Transmission Date: 20130627
  Serious: Yes (Hospitalization, Other)
  Sender: FDA-Public Use
  Company Number: 2012P1054037

PATIENT
  Age: 64 Year
  Sex: Male
  Weight: 60.33 kg

DRUGS (6)
  1. FENTANYL PATCH [Suspect]
     Indication: BACK PAIN
     Route: 062
     Dates: start: 201106
  2. FENTANYL PATCH [Suspect]
     Indication: BACK PAIN
     Route: 062
     Dates: end: 201202
  3. FENTANYL PATCH [Suspect]
     Indication: BACK PAIN
     Dosage: 1 patch
     Route: 062
     Dates: start: 201202
  4. OXYCODONE [Concomitant]
  5. HEART MEDICINE [Concomitant]
  6. STOMACH MEDICINE [Concomitant]

REACTIONS (7)
  - Back pain [None]
  - Gastric perforation [None]
  - Gastric haemorrhage [None]
  - Drug effect decreased [None]
  - Intervertebral disc protrusion [None]
  - Device dislocation [None]
  - Drug ineffective [None]
